FAERS Safety Report 8955925 (Version 3)
Quarter: 2013Q1

REPORT INFORMATION
  Report Type: Report from Study
  Country: GB (occurrence: DK)
  Receive Date: 20121210
  Receipt Date: 20130131
  Transmission Date: 20140127
  Serious: Yes (Other)
  Sender: FDA-Public Use
  Company Number: PHHO2012DK017628

PATIENT
  Age: 65 Year
  Sex: Female
  Weight: 80.9 kg

DRUGS (3)
  1. LETROZOLE [Suspect]
     Dosage: 25 MG, DAILY
     Dates: start: 20121009
  2. CALCIUM VITAMIN D [Concomitant]
  3. MULTIVITAMINS [Concomitant]

REACTIONS (1)
  - Optic ischaemic neuropathy [Recovered/Resolved with Sequelae]
